FAERS Safety Report 7408315-X (Version None)
Quarter: 2011Q2

REPORT INFORMATION
  Report Type: 
  Country: None (occurrence: None)
  Receive Date: 20110412
  Receipt Date: 20110404
  Transmission Date: 20111010
  Serious: Yes (Death, Life-Threatening, Other)
  Sender: FDA-Public Use
  Company Number: IT-JNJFOC-20101107887

PATIENT
  Age: 65 Year

DRUGS (4)
  1. BORTEZOMIB [Suspect]
     Indication: MULTIPLE MYELOMA
     Dosage: DAYS 1, 4, 8 AND 11
     Route: 042
  2. DEXAMETHASONE [Suspect]
     Indication: MULTIPLE MYELOMA
     Dosage: DAYS 1-2, 4-5, 8-9, 11-12
     Route: 048
  3. THALIDOMIDE [Suspect]
     Indication: MULTIPLE MYELOMA
     Route: 048
  4. DOXIL [Suspect]
     Indication: MULTIPLE MYELOMA
     Dosage: DAY 4
     Route: 042

REACTIONS (1)
  - MYOCARDIAL INFARCTION [None]
